FAERS Safety Report 7951482-X (Version None)
Quarter: 2011Q4

REPORT INFORMATION
  Report Type: 
  Country: None (occurrence: None)
  Receive Date: 20111201
  Receipt Date: 20111122
  Transmission Date: 20120403
  Serious: Yes (Hospitalization)
  Sender: FDA-Public Use
  Company Number: HK-GENZYME-POMP-1001539

PATIENT
  Sex: Female
  Weight: 15.4 kg

DRUGS (3)
  1. HYOSCINE [Concomitant]
     Indication: DROOLING
     Dosage: 0.75 MG, UNK
     Route: 062
     Dates: start: 20100801
  2. MYOZYME [Suspect]
     Indication: GLYCOGEN STORAGE DISEASE TYPE II
     Dosage: 40 MG/KG, Q2W
     Route: 042
     Dates: start: 20070201
  3. MYOZYME [Suspect]
     Dosage: 20 MG/KG, QW
     Route: 042

REACTIONS (3)
  - THERAPEUTIC RESPONSE DECREASED [None]
  - RESPIRATORY FAILURE [None]
  - STAPHYLOCOCCAL SEPSIS [None]
